FAERS Safety Report 8766343 (Version 3)
Quarter: 2013Q4

REPORT INFORMATION
  Report Type: Spontaneous
  Country: GB (occurrence: GB)
  Receive Date: 20120904
  Receipt Date: 20131031
  Transmission Date: 20140711
  Serious: Yes (Other)
  Sender: FDA-Public Use
  Company Number: GB-MERCK-2012SP031329

PATIENT
  Age: 44 Year
  Sex: Male

DRUGS (1)
  1. SYCREST [Suspect]
     Indication: MOOD ALTERED
     Dosage: 5 MG,BID
     Route: 048
     Dates: start: 201202, end: 201207

REACTIONS (2)
  - Suicidal ideation [Recovering/Resolving]
  - Dysgeusia [Recovered/Resolved]
